FAERS Safety Report 6835508-2 (Version None)
Quarter: 2010Q3

REPORT INFORMATION
  Report Type: 
  Country: None (occurrence: None)
  Receive Date: 20100713
  Receipt Date: 20100629
  Transmission Date: 20110219
  Serious: Yes (Other)
  Sender: FDA-Public Use
  Company Number: PHHY2010US31344

PATIENT
  Sex: Female
  Weight: 65 kg

DRUGS (4)
  1. GLEEVEC [Suspect]
     Indication: CHRONIC MYELOID LEUKAEMIA
     Dosage: 400 MG, QD
     Route: 048
     Dates: start: 20090301
  2. HYDREA [Suspect]
     Indication: CHRONIC MYELOID LEUKAEMIA
     Dosage: 400 MG, QD
     Route: 048
     Dates: start: 20090201, end: 20090301
  3. ESTROGENS [Concomitant]
     Route: 048
  4. MULTIVIT [Concomitant]
     Dosage: QD
     Route: 048

REACTIONS (1)
  - SURGERY [None]
